FAERS Safety Report 8198143-2 (Version None)
Quarter: 2012Q1

REPORT INFORMATION
  Report Type: 
  Country: None (occurrence: None)
  Receive Date: 20120309
  Receipt Date: 20120302
  Transmission Date: 20120608
  Serious: Yes (Other)
  Sender: FDA-Public Use
  Company Number: US-PFIZER INC-2012057892

PATIENT
  Sex: Female

DRUGS (2)
  1. NORVASC [Suspect]
     Dosage: 5 MG, 1X/DAY
  2. NITROSTAT [Suspect]
     Dosage: 0.4 MG,UPTO 3 PER EPISOD

REACTIONS (2)
  - CARPAL TUNNEL SYNDROME [None]
  - FIBROMYALGIA [None]
